FAERS Safety Report 19716973 (Version 2)
Quarter: 2021Q3

REPORT INFORMATION
  Report Type: Spontaneous
  Country: NL (occurrence: DE)
  Receive Date: 20210818
  Receipt Date: 20210921
  Transmission Date: 20211014
  Serious: Yes (Other)
  Sender: FDA-Public Use
  Company Number: DE-FRESENIUS KABI-FK202108556

PATIENT
  Age: 79 Year
  Sex: Male

DRUGS (2)
  1. BCG VACCINE [Suspect]
     Active Substance: BCG VACCINE
     Indication: BLADDER CANCER
     Dosage: THE FIRST THREE ADMINISTRATIONS WERE TOLERATED WELL, ONSET OF ADVERSE EVENTS AFTER FOURTH ADMINISTRA
     Route: 043
  2. LEVOFLOXACIN (MANUFACTURER UNKNOWN) [Suspect]
     Active Substance: LEVOFLOXACIN
     Indication: PRODUCT USED FOR UNKNOWN INDICATION
     Dosage: AFTER SECOND DAY OF ADMINISTRATION PATIENT HAD WATER IN THE FEET
     Route: 065

REACTIONS (5)
  - Oedema peripheral [Recovered/Resolved]
  - Mobility decreased [Recovered/Resolved]
  - Bacterial test positive [Recovered/Resolved]
  - Malaise [Recovered/Resolved]
  - Pain [Recovered/Resolved]

NARRATIVE: CASE EVENT DATE: 2021
